FAERS Safety Report 23556121 (Version 1)
Quarter: 2024Q1

REPORT INFORMATION
  Report Type: Spontaneous
  Country: US (occurrence: US)
  Receive Date: 20240222
  Receipt Date: 20240222
  Transmission Date: 20240409
  Serious: Yes (Hospitalization)
  Sender: FDA-Public Use
  Company Number: US-ENDO PHARMACEUTICALS INC-2024-001001

PATIENT
  Age: 50 Year
  Sex: Male

DRUGS (2)
  1. CLONIDINE HYDROCHLORIDE [Suspect]
     Active Substance: CLONIDINE HYDROCHLORIDE
     Indication: Insomnia
     Dosage: UNK UNKNOWN, UNKNOWN
     Route: 065
  2. OLANZAPINE [Concomitant]
     Active Substance: OLANZAPINE
     Indication: Insomnia
     Dosage: UNK UNKNOWN, UNKNOWN
     Route: 065

REACTIONS (11)
  - Aphasia [Recovered/Resolved]
  - Dependence [Recovering/Resolving]
  - Drug abuse [Recovering/Resolving]
  - Dysarthria [Recovered/Resolved]
  - Hyponatraemia [Recovered/Resolved]
  - Mental status changes [Recovered/Resolved]
  - Myoclonus [Recovered/Resolved]
  - Pyrexia [Recovered/Resolved]
  - Tachypnoea [Recovered/Resolved]
  - Drug withdrawal syndrome [Recovering/Resolving]
  - Off label use [Unknown]
